FAERS Safety Report 16416029 (Version 2)
Quarter: 2019Q4

REPORT INFORMATION
  Report Type: Report from Study
  Country: DE (occurrence: DE)
  Receive Date: 20190611
  Receipt Date: 20191213
  Transmission Date: 20200122
  Serious: Yes (Other)
  Sender: FDA-Public Use
  Company Number: DE-JNJFOC-20180613959

PATIENT
  Age: 4 Decade
  Sex: Male

DRUGS (1)
  1. SIMPONI [Suspect]
     Active Substance: GOLIMUMAB
     Indication: PRODUCT USED FOR UNKNOWN INDICATION
     Route: 058

REACTIONS (6)
  - Muscle tightness [Unknown]
  - Gastrointestinal infection [Unknown]
  - Oral herpes [Unknown]
  - Headache [Unknown]
  - Influenza like illness [Unknown]
  - Haematochezia [Unknown]

NARRATIVE: CASE EVENT DATE: 20170915
